FAERS Safety Report 4997869-9 (Version None)
Quarter: 2006Q2

REPORT INFORMATION
  Report Type: 
  Country: None (occurrence: None)
  Receive Date: 20060508
  Receipt Date: 20060508
  Transmission Date: 20061013
  Serious: Yes (Life-Threatening)
  Sender: FDA-Public Use
  Company Number: None

PATIENT
  Age: 36 Year
  Sex: Male
  Weight: 106.5953 kg

DRUGS (2)
  1. VANCOMYCIN [Suspect]
     Indication: OSTEOMYELITIS
     Dosage: 1500 MG Q 8 HRS IV
     Route: 042
     Dates: start: 20060207, end: 20060304
  2. VANCOMYCIN [Suspect]

REACTIONS (1)
  - NEUTROPENIA [None]
